FAERS Safety Report 18070564 (Version 1)
Quarter: 2020Q3

REPORT INFORMATION
  Report Type: Report from Study
  Country: None (occurrence: US)
  Receive Date: 20200727
  Receipt Date: 20200727
  Transmission Date: 20201103
  Serious: Yes (Other)
  Sender: FDA-Public Use
  Company Number: US-ABBVIE-20K-163-3497667-00

PATIENT
  Sex: Female

DRUGS (1)
  1. VENCLEXTA [Suspect]
     Active Substance: VENETOCLAX
     Indication: ACUTE MYELOID LEUKAEMIA
     Route: 048
     Dates: start: 202005, end: 2020

REACTIONS (7)
  - Blood count abnormal [Unknown]
  - Neutrophil count decreased [Unknown]
  - Haemoglobin decreased [Unknown]
  - Rash [Unknown]
  - Platelet count decreased [Unknown]
  - Packed red blood cell transfusion [Unknown]
  - Stomatitis [Unknown]

NARRATIVE: CASE EVENT DATE: 2020
